FAERS Safety Report 9249406 (Version 1)
Quarter: 2013Q2

REPORT INFORMATION
  Report Type: Spontaneous
  Country: US (occurrence: US)
  Receive Date: 20130423
  Receipt Date: 20130423
  Transmission Date: 20140414
  Serious: No
  Sender: FDA-Public Use
  Company Number: US-PFIZER INC-2013127283

PATIENT
  Age: 49 Year
  Sex: Female
  Weight: 65.76 kg

DRUGS (5)
  1. LYRICA [Suspect]
     Indication: FIBROMYALGIA
     Dosage: 100 MG, 2X/DAY
     Route: 048
     Dates: end: 20130420
  2. CELEBREX [Concomitant]
     Indication: ARTHRITIS
     Dosage: 200 MG, UNK
  3. LEXAPRO [Concomitant]
     Indication: ANXIETY
     Dosage: 20 MG, UNK
  4. CLONAZEPAM [Concomitant]
     Indication: ANXIETY
     Dosage: 0.5 MG, UNK
  5. FROVA [Concomitant]
     Indication: MIGRAINE
     Dosage: 2.5 MG, UNK

REACTIONS (1)
  - Headache [Not Recovered/Not Resolved]
